FAERS Safety Report 4567115-9 (Version None)
Quarter: 2005Q1

REPORT INFORMATION
  Report Type: 
  Country: None (occurrence: None)
  Receive Date: 20050201
  Receipt Date: 20050121
  Transmission Date: 20050727
  Serious: Yes (Life-Threatening)
  Sender: FDA-Public Use
  Company Number: IT-JNJFOC-20050105282

PATIENT
  Sex: Male

DRUGS (1)
  1. TOPIRAMATE [Suspect]
     Route: 049
     Dates: start: 20040920, end: 20041006

REACTIONS (4)
  - ARTHRALGIA [None]
  - DYSTONIA [None]
  - ERYTHEMA [None]
  - LYMPHOEDEMA [None]
